FAERS Safety Report 4963086-1 (Version None)
Quarter: 2006Q2

REPORT INFORMATION
  Report Type: 
  Country: None (occurrence: None)
  Receive Date: 20060405
  Receipt Date: 20060303
  Transmission Date: 20061013
  Serious: Yes (Other)
  Sender: FDA-Public Use
  Company Number: GB-GLAXOSMITHKLINE-B0414634A

PATIENT
  Sex: Male

DRUGS (3)
  1. SEROXAT [Suspect]
     Dosage: 20MG UNKNOWN
     Route: 065
     Dates: start: 20000706
  2. IBUPROFEN [Suspect]
     Route: 065
  3. PARACETAMOL [Suspect]
     Route: 065

REACTIONS (8)
  - COMPLETED SUICIDE [None]
  - DRUG WITHDRAWAL SYNDROME [None]
  - HYPERHIDROSIS [None]
  - INTENTIONAL OVERDOSE [None]
  - MULTIPLE DRUG OVERDOSE INTENTIONAL [None]
  - OVERDOSE [None]
  - PANIC REACTION [None]
  - SOMNOLENCE [None]
